FAERS Safety Report 17420017 (Version 3)
Quarter: 2020Q3

REPORT INFORMATION
  Report Type: Spontaneous
  Country: US (occurrence: US)
  Receive Date: 20200214
  Receipt Date: 20200917
  Transmission Date: 20201102
  Serious: Yes (Other)
  Sender: FDA-Public Use
  Company Number: US-PFIZER INC-2019458294

PATIENT
  Age: 61 Year
  Sex: Female

DRUGS (2)
  1. SUTENT [Suspect]
     Active Substance: SUNITINIB MALATE
     Dosage: UNK (DOSE WAS LOWERED)
  2. SUTENT [Suspect]
     Active Substance: SUNITINIB MALATE
     Indication: PROPHYLAXIS
     Dosage: UNK

REACTIONS (3)
  - Platelet count decreased [Unknown]
  - Impaired gastric emptying [Unknown]
  - White coat hypertension [Unknown]
